FAERS Safety Report 8848110 (Version 1)
Quarter: 2012Q4

REPORT INFORMATION
  Report Type: 
  Country: TR (occurrence: TR)
  Receive Date: 20121018
  Receipt Date: 20121018
  Transmission Date: 20130627
  Serious: Yes (Death)
  Sender: FDA-Public Use
  Company Number: US-MEDICIS-2012P1060836

PATIENT
  Age: 12 Day
  Sex: Male
  Weight: 2.81 kg

DRUGS (2)
  1. AMMONUL [Suspect]
     Indication: HYPERAMMONAEMIA
     Route: 042
     Dates: start: 20120928
  2. CARBAGLU [Concomitant]
     Indication: HYPERAMMONAEMIA
     Route: 048
     Dates: start: 20120928, end: 20120930

REACTIONS (8)
  - Hypotension [Fatal]
  - Apnoea [Fatal]
  - Hyperglycaemia [Fatal]
  - Respiratory failure [Fatal]
  - Blood pH decreased [None]
  - PCO2 decreased [None]
  - PO2 decreased [None]
  - Blood bicarbonate decreased [None]
